FAERS Safety Report 12181510 (Version 1)
Quarter: 2016Q1

REPORT INFORMATION
  Report Type: Spontaneous
  Country: PT (occurrence: PT)
  Receive Date: 20160315
  Receipt Date: 20160315
  Transmission Date: 20160526
  Serious: Yes (Other)
  Sender: FDA-Public Use
  Company Number: PT-MYLANLABS-2016M1008802

PATIENT

DRUGS (7)
  1. LANSOPRAZOLE MYLAN [Suspect]
     Active Substance: LANSOPRAZOLE
     Indication: GASTRITIS
     Dosage: 15 MG, QD
     Route: 048
     Dates: start: 20160224, end: 20160229
  2. CLOPIDOGREL [Concomitant]
     Active Substance: CLOPIDOGREL BISULFATE
     Indication: ANTIPLATELET THERAPY
     Dosage: 75 MG, QD (1 TABLET AFTER LUNCH)
     Route: 048
  3. LANSOPRAZOLE MYLAN [Suspect]
     Active Substance: LANSOPRAZOLE
     Indication: GASTROOESOPHAGEAL REFLUX DISEASE
     Dosage: 30 MG, QD
     Route: 048
  4. EUCREAS [Concomitant]
     Active Substance: METFORMIN HYDROCHLORIDE\VILDAGLIPTIN
     Indication: DIABETES MELLITUS
     Dosage: UNK (1 TABLET AFTER BREAKFAST AND AT NIGHT)
     Route: 048
  5. ZYLORIC [Concomitant]
     Active Substance: ALLOPURINOL
     Indication: BLOOD URIC ACID INCREASED
     Dosage: 300 MG, QD (1 TABLET AFTER LUNCH)
     Route: 048
  6. ALIPZA [Concomitant]
     Active Substance: PITAVASTATIN
     Indication: BLOOD CHOLESTEROL INCREASED
     Dosage: 2 MG, QD (1 TABLET AT NIGHT)
     Route: 048
  7. NEBIVOLOL. [Concomitant]
     Active Substance: NEBIVOLOL
     Indication: HYPERTENSION
     Dosage: 5 MG, QD (AFTER BREAKFAST)
     Route: 048

REACTIONS (3)
  - Nervous system disorder [Recovered/Resolved]
  - Flatulence [Recovered/Resolved]
  - Hypertension [Recovered/Resolved]
